FAERS Safety Report 11357411 (Version 1)
Quarter: 2015Q3

REPORT INFORMATION
  Report Type: Spontaneous
  Country: US (occurrence: US)
  Receive Date: 20150803
  Receipt Date: 20150803
  Transmission Date: 20151125
  Serious: No
  Sender: FDA-Public Use
  Company Number: US-ELI_LILLY_AND_COMPANY-US201403001600

PATIENT
  Sex: Male

DRUGS (3)
  1. STRATTERA [Suspect]
     Active Substance: ATOMOXETINE HYDROCHLORIDE
     Indication: ATTENTION DEFICIT/HYPERACTIVITY DISORDER
     Dosage: 10 MG, QD
     Route: 065
     Dates: start: 20140226, end: 20140302
  2. PAXIL [Concomitant]
     Active Substance: PAROXETINE HYDROCHLORIDE
     Indication: PRODUCT USED FOR UNKNOWN INDICATION
     Dosage: UNK, UNKNOWN
     Route: 065
  3. STRATTERA [Suspect]
     Active Substance: ATOMOXETINE HYDROCHLORIDE
     Dosage: 18 MG, QD
     Route: 065
     Dates: start: 20140303

REACTIONS (16)
  - Dizziness [Unknown]
  - Urticaria [Unknown]
  - Pruritus [Unknown]
  - Sneezing [Unknown]
  - Chromaturia [Unknown]
  - Influenza like illness [Unknown]
  - Dry mouth [Unknown]
  - Asthenia [Unknown]
  - Vertigo [Unknown]
  - Muscle spasms [Unknown]
  - Dyskinesia [Unknown]
  - Insomnia [Unknown]
  - Eyelid oedema [Unknown]
  - Chest discomfort [Unknown]
  - Lethargy [Unknown]
  - Rash [Unknown]
